FAERS Safety Report 5169385-5 (Version None)
Quarter: 2006Q4

REPORT INFORMATION
  Report Type: 
  Country: None (occurrence: None)
  Receive Date: 20061201
  Receipt Date: 20061116
  Transmission Date: 20070319
  Serious: No
  Sender: FDA-Public Use
  Company Number: E3810-00446-CLI-US

PATIENT
  Age: 26 Year
  Sex: Female
  Weight: 74 kg

DRUGS (3)
  1. ACIPHEX [Suspect]
     Indication: DYSPEPSIA
     Dosage: 10 MG, 1 IN 1 D, ORAL
     Route: 048
     Dates: start: 20060828
  2. TRIVORA (EUGYNON) [Concomitant]
  3. PLAN B [Concomitant]

REACTIONS (6)
  - ABDOMINAL PAIN [None]
  - ABORTION SPONTANEOUS [None]
  - DRUG EXPOSURE DURING PREGNANCY [None]
  - FALSE NEGATIVE PREGNANCY TEST [None]
  - PREGNANCY [None]
  - VAGINAL HAEMORRHAGE [None]
